FAERS Safety Report 5862158-7 (Version None)
Quarter: 2008Q3

REPORT INFORMATION
  Report Type: 
  Country: None (occurrence: None)
  Receive Date: 20080828
  Receipt Date: 20080516
  Transmission Date: 20090109
  Serious: No
  Sender: FDA-Public Use
  Company Number: A0729493A

PATIENT
  Age: 71 Year
  Sex: Female

DRUGS (3)
  1. ZOVIRAX [Suspect]
  2. ATENOLOL [Concomitant]
  3. EVISTA [Concomitant]
     Indication: OSTEOPOROSIS

REACTIONS (1)
  - BURNING SENSATION [None]
